FAERS Safety Report 18588522 (Version 1)
Quarter: 2020Q4

REPORT INFORMATION
  Report Type: Report from Study
  Country: CA (occurrence: CA)
  Receive Date: 20201207
  Receipt Date: 20201207
  Transmission Date: 20210114
  Serious: Yes (Other)
  Sender: FDA-Public Use
  Company Number: CA-NALPROPION PHARMACEUTICALS INC.-2020-011823

PATIENT

DRUGS (13)
  1. CONTRAVE [Suspect]
     Active Substance: BUPROPION HYDROCHLORIDE\NALTREXONE HYDROCHLORIDE
     Dosage: 90/8MG, 1 TAB IN MORNING, 1 TAB IN EVENING
     Route: 048
     Dates: start: 20201113, end: 20201117
  2. SYNTHROID [Concomitant]
     Active Substance: LEVOTHYROXINE SODIUM
     Indication: HYPOTHYROIDISM
     Dosage: 0.5 MG,1 IN 1 D
     Route: 048
  3. CONTRAVE [Suspect]
     Active Substance: BUPROPION HYDROCHLORIDE\NALTREXONE HYDROCHLORIDE
     Dosage: 90/8MG, 1 TAB EVERY MORNING
     Route: 048
     Dates: start: 20201109, end: 20201112
  4. CONTRAVE [Suspect]
     Active Substance: BUPROPION HYDROCHLORIDE\NALTREXONE HYDROCHLORIDE
     Dosage: 90/8MG, 2 TAB IN MORNING, 2 TAB IN EVENING
     Route: 048
     Dates: start: 20201121
  5. WELLBUTRIN XL [Suspect]
     Active Substance: BUPROPION HYDROCHLORIDE
     Indication: PRODUCT USED FOR UNKNOWN INDICATION
     Dosage: 300 MG
     Route: 048
  6. CONTRAVE [Suspect]
     Active Substance: BUPROPION HYDROCHLORIDE\NALTREXONE HYDROCHLORIDE
     Dosage: 90/8MG, 2 TAB IN MORNING, 1 TAB IN EVENING
     Route: 048
     Dates: start: 20201118, end: 20201120
  7. SPIRONOLACTONE. [Concomitant]
     Active Substance: SPIRONOLACTONE
     Indication: OEDEMA PERIPHERAL
     Dosage: 1 IN 1 D
     Route: 048
  8. PANTOPRAZOLE [Concomitant]
     Active Substance: PANTOPRAZOLE
     Indication: GASTROOESOPHAGEAL REFLUX DISEASE
     Dosage: 1 IN 1 D
     Route: 048
  9. HUMIRA [Concomitant]
     Active Substance: ADALIMUMAB
     Indication: COLITIS ULCERATIVE
     Dosage: 1 IN 1 WK
     Route: 058
  10. WELLBUTRIN XL [Suspect]
     Active Substance: BUPROPION HYDROCHLORIDE
     Dosage: STOPPED APPROXIMATELY 09/NOV/2020
     Route: 048
     Dates: end: 202011
  11. FLEXERIL [Concomitant]
     Active Substance: CYCLOBENZAPRINE HYDROCHLORIDE
     Indication: TEMPOROMANDIBULAR JOINT SYNDROME
     Dosage: AS NEEDED
     Route: 048
  12. SERTRALINE [Concomitant]
     Active Substance: SERTRALINE HYDROCHLORIDE
     Indication: DEPRESSION
     Dosage: AT BEDTIME (HS)
     Route: 048
  13. CONTRAVE [Suspect]
     Active Substance: BUPROPION HYDROCHLORIDE\NALTREXONE HYDROCHLORIDE
     Indication: WEIGHT CONTROL
     Dosage: 90/8MG
     Route: 048

REACTIONS (11)
  - Stress [Unknown]
  - Drug titration error [Unknown]
  - Back pain [Not Recovered/Not Resolved]
  - Product prescribing error [Unknown]
  - Colitis ulcerative [Not Recovered/Not Resolved]
  - Back injury [Not Recovered/Not Resolved]
  - Insomnia [Not Recovered/Not Resolved]
  - Insurance issue [Unknown]
  - Contraindicated product administered [Unknown]
  - Patient dissatisfaction with treatment [Unknown]
  - Gait disturbance [Unknown]

NARRATIVE: CASE EVENT DATE: 2020
